FAERS Safety Report 8599038-2 (Version None)
Quarter: 2012Q3

REPORT INFORMATION
  Report Type: 
  Country: None (occurrence: None)
  Receive Date: 20120816
  Receipt Date: 20120809
  Transmission Date: 20120928
  Serious: Yes (Other)
  Sender: FDA-Public Use
  Company Number: US-GLAXOSMITHKLINE-A0988899A

PATIENT
  Age: 49 Year
  Sex: Female

DRUGS (3)
  1. GABAPENTIN [Concomitant]
     Indication: NERVE INJURY
  2. NICODERM CQ [Suspect]
     Indication: EX-TOBACCO USER
     Route: 062
     Dates: start: 20120807, end: 20120809
  3. UNSPECIFIED PAIN MEDICATION [Concomitant]

REACTIONS (6)
  - SOMNOLENCE [None]
  - LETHARGY [None]
  - DRUG ADMINISTRATION ERROR [None]
  - TOXICITY TO VARIOUS AGENTS [None]
  - FATIGUE [None]
  - DIZZINESS [None]
